FAERS Safety Report 12215320 (Version 1)
Quarter: 2016Q1

REPORT INFORMATION
  Report Type: Spontaneous
  Country: ES (occurrence: ES)
  Receive Date: 20160328
  Receipt Date: 20160328
  Transmission Date: 20160526
  Serious: Yes (Other)
  Sender: FDA-Public Use
  Company Number: ES-MYLANLABS-2016M1012647

PATIENT

DRUGS (3)
  1. KETOPROFEN. [Suspect]
     Active Substance: KETOPROFEN
     Indication: SARCOIDOSIS
     Dosage: 50 MG/DAY
     Route: 058
  2. ENOXAPARIN SODIUM. [Concomitant]
     Active Substance: ENOXAPARIN SODIUM
     Indication: SARCOIDOSIS
     Dosage: 40 MG/DAY
     Route: 058
  3. OMEPRAZOLE. [Concomitant]
     Active Substance: OMEPRAZOLE
     Indication: SARCOIDOSIS
     Dosage: 20 MG/DAY
     Route: 058

REACTIONS (1)
  - Linear IgA disease [Recovered/Resolved]
